FAERS Safety Report 4425103-7 (Version None)
Quarter: 2004Q3

REPORT INFORMATION
  Report Type: 
  Country: None (occurrence: None)
  Receive Date: 20040813
  Receipt Date: 20040802
  Transmission Date: 20050211
  Serious: Yes (Other)
  Sender: FDA-Public Use
  Company Number: FR-JNJFOC-20040602733

PATIENT
  Sex: Female
  Weight: 54 kg

DRUGS (11)
  1. EPITOMAX [Suspect]
     Route: 049
  2. EPITOMAX [Suspect]
     Indication: EPILEPSY
     Route: 049
  3. DI-HYDAN [Concomitant]
     Route: 065
  4. URBANYL [Concomitant]
  5. PHENOBARBITAL TAB [Concomitant]
     Route: 065
  6. PHENOBARBITAL TAB [Concomitant]
     Route: 065
  7. PHENOBARBITAL TAB [Concomitant]
     Route: 065
  8. CLONAZEPAM [Concomitant]
     Route: 065
  9. HEPT-A-MYL [Concomitant]
     Dosage: 4 TABLETS A DAY
     Route: 065
  10. BRICANYL [Concomitant]
     Dosage: 1 PUFF A DAY
     Route: 065
  11. SINGULAIR [Concomitant]
     Route: 065

REACTIONS (9)
  - ATONIC URINARY BLADDER [None]
  - BLOOD CREATININE INCREASED [None]
  - GAMMA-GLUTAMYLTRANSFERASE INCREASED [None]
  - GLAUCOMA [None]
  - OVERDOSE [None]
  - SOMNOLENCE [None]
  - URINARY INCONTINENCE [None]
  - URINARY RETENTION [None]
  - URINARY SEDIMENT PRESENT [None]
